FAERS Safety Report 4494322-6 (Version None)
Quarter: 2004Q4

REPORT INFORMATION
  Report Type: 
  Country: None (occurrence: None)
  Receive Date: 20041105
  Receipt Date: 20041102
  Transmission Date: 20050328
  Serious: Yes (Other)
  Sender: FDA-Public Use
  Company Number: F01200401676

PATIENT
  Age: 56 Year
  Sex: Male

DRUGS (8)
  1. FONDAPARINUX SODIUM [Suspect]
     Indication: ORTHOPEDIC PROCEDURE
     Dosage: 2.5MG PER DAY
     Route: 058
     Dates: start: 20040615, end: 20040629
  2. SKENAN [Concomitant]
  3. URBANYL [Concomitant]
  4. STILNOX [Concomitant]
  5. OMEPRAZOLE [Concomitant]
  6. MYOLASTAN [Concomitant]
  7. RIVOTRIL [Concomitant]
  8. FERROUS FUMARATE [Concomitant]

REACTIONS (1)
  - THROMBOCYTHAEMIA [None]
